FAERS Safety Report 16106810 (Version 1)
Quarter: 2019Q1

REPORT INFORMATION
  Report Type: Report from Study
  Country: GB (occurrence: GB)
  Receive Date: 20190322
  Receipt Date: 20190322
  Transmission Date: 20190418
  Serious: Yes (Other)
  Sender: FDA-Public Use
  Company Number: GB-MYLANLABS-2019M1026258

PATIENT
  Age: 31 Year

DRUGS (3)
  1. TOPAMAX [Concomitant]
     Active Substance: TOPIRAMATE
     Indication: PRODUCT USED FOR UNKNOWN INDICATION
     Dosage: UNK
  2. LEVETIRACETAM. [Suspect]
     Active Substance: LEVETIRACETAM
     Indication: PRODUCT USED FOR UNKNOWN INDICATION
     Dosage: UNK
     Route: 065
  3. LAMICTAL [Concomitant]
     Active Substance: LAMOTRIGINE
     Indication: PRODUCT USED FOR UNKNOWN INDICATION
     Dosage: UNK

REACTIONS (12)
  - Dizziness [Unknown]
  - Jamais vu [Unknown]
  - Petit mal epilepsy [Unknown]
  - Fatigue [Unknown]
  - Anger [Unknown]
  - Suicidal ideation [Unknown]
  - Deja vu [Unknown]
  - Aura [Unknown]
  - Depression [Unknown]
  - Labyrinthitis [Unknown]
  - Obsessive-compulsive disorder [Unknown]
  - Balance disorder [Unknown]
